FAERS Safety Report 25609288 (Version 1)
Quarter: 2025Q3

REPORT INFORMATION
  Report Type: Spontaneous
  Country: US (occurrence: US)
  Receive Date: 20250727
  Receipt Date: 20250727
  Transmission Date: 20251020
  Serious: No
  Sender: SANOFI AVENTIS
  Company Number: US-SA-2025SA209688

PATIENT
  Sex: Male
  Weight: 147.73 kg

DRUGS (3)
  1. DUPIXENT [Suspect]
     Active Substance: DUPILUMAB
     Indication: Dermatitis atopic
     Dosage: 300 MG, QOW
     Route: 058
  2. VERZENIO [Suspect]
     Active Substance: ABEMACICLIB
  3. VERZENIO [Suspect]
     Active Substance: ABEMACICLIB

REACTIONS (3)
  - Somnolence [Unknown]
  - Gait disturbance [Unknown]
  - Illness [Unknown]
